FAERS Safety Report 5769484-0 (Version None)
Quarter: 2008Q2

REPORT INFORMATION
  Report Type: 
  Country: None (occurrence: None)
  Receive Date: 20080612
  Receipt Date: 20080401
  Transmission Date: 20081010
  Serious: No
  Sender: FDA-Public Use
  Company Number: US-ABBOTT-08P-163-0444900-00

PATIENT
  Sex: Male

DRUGS (5)
  1. HUMIRA [Suspect]
     Indication: PSORIASIS
     Route: 058
     Dates: start: 20080304, end: 20080401
  2. HUMIRA [Suspect]
     Indication: PSORIATIC ARTHROPATHY
     Route: 058
     Dates: start: 20080402
  3. METHOTREXATE [Concomitant]
     Indication: PSORIASIS
     Dosage: 7-2.5 MG PILLS EVERY WEEK
     Route: 048
     Dates: start: 20070101
  4. METHOTREXATE [Concomitant]
     Indication: PSORIATIC ARTHROPATHY
  5. FOLIC ACID [Concomitant]
     Indication: MEDICAL DIET
     Dosage: 2 MG DAILY
     Route: 048
     Dates: start: 20070101

REACTIONS (7)
  - BLOOD GLUCOSE INCREASED [None]
  - DYSPNOEA [None]
  - EYE SWELLING [None]
  - FACIAL PALSY [None]
  - MUSCULOSKELETAL CHEST PAIN [None]
  - ORAL HERPES [None]
  - PARAESTHESIA [None]
